FAERS Safety Report 10417864 (Version 1)
Quarter: 2014Q2

REPORT INFORMATION
  Report Type: Spontaneous
  Country: US (occurrence: None)
  Receive Date: 20140611
  Receipt Date: 20140611
  Transmission Date: 20141212
  Serious: Yes (Other)
  Sender: FDA-Public Use
  Company Number: 2013-17241

PATIENT
  Age: 42 Year
  Sex: Female

DRUGS (1)
  1. CRINONE [Suspect]
     Indication: PRODUCT USED FOR UNKNOWN INDICATION
     Dates: start: 20130808

REACTIONS (4)
  - Abortion spontaneous [None]
  - Vulvovaginal discomfort [None]
  - Pruritus [None]
  - Application site pain [None]
